FAERS Safety Report 6965357-6 (Version None)
Quarter: 2010Q3

REPORT INFORMATION
  Report Type: 
  Country: None (occurrence: None)
  Receive Date: 20100903
  Receipt Date: 20100824
  Transmission Date: 20110219
  Serious: Yes (Hospitalization)
  Sender: FDA-Public Use
  Company Number: DE-JNJFOC-20100606091

PATIENT
  Sex: Female
  Weight: 64 kg

DRUGS (10)
  1. BLINDED; USTEKINUMA [Suspect]
     Indication: CROHN'S DISEASE
     Route: 058
  2. BLINDED; USTEKINUMA [Suspect]
     Route: 058
  3. PLACEBO [Suspect]
     Indication: CROHN'S DISEASE
     Route: 058
  4. PLACEBO [Suspect]
     Route: 058
  5. USTEKINUMAB-BLINDED [Suspect]
     Route: 042
  6. USTEKINUMAB-BLINDED [Suspect]
     Indication: CROHN'S DISEASE
     Route: 042
  7. PLACEBO [Suspect]
     Route: 042
  8. LOPERAMIDE [Concomitant]
     Route: 048
  9. ETHINYL ESTRADIOL [Concomitant]
     Route: 048
  10. ASPIRIN PLUS C [Concomitant]
     Route: 048

REACTIONS (1)
  - INTESTINAL RESECTION [None]
